FAERS Safety Report 15458375 (Version 1)
Quarter: 2018Q3

REPORT INFORMATION
  Report Type: Spontaneous
  Country: US (occurrence: US)
  Receive Date: 20180929
  Receipt Date: 20180929
  Transmission Date: 20181010
  Serious: No
  Sender: FDA-Public Use
  Company Number: None

PATIENT
  Age: 45 Year
  Sex: Female
  Weight: 117 kg

DRUGS (1)
  1. DUEXIS [Suspect]
     Active Substance: FAMOTIDINE\IBUPROFEN
     Indication: ARTHRITIS
     Dates: start: 20180927, end: 20180928

REACTIONS (1)
  - Abdominal pain upper [None]

NARRATIVE: CASE EVENT DATE: 20180928
